FAERS Safety Report 23274625 (Version 5)
Quarter: 2024Q3

REPORT INFORMATION
  Report Type: Spontaneous
  Country: ES (occurrence: ES)
  Receive Date: 20231208
  Receipt Date: 20240911
  Transmission Date: 20241017
  Serious: Yes (Death, Other)
  Sender: VELOXIS PHARMACEUTICALS
  Company Number: ES-ROCHE-3463387

PATIENT
  Age: 57 Year
  Sex: Male

DRUGS (24)
  1. TACROLIMUS [Suspect]
     Active Substance: TACROLIMUS
     Indication: Prophylaxis against transplant rejection
     Dosage: UNK
     Route: 065
  2. TACROLIMUS [Suspect]
     Active Substance: TACROLIMUS
     Indication: Prophylaxis against graft versus host disease
  3. CYTARABINE [Suspect]
     Active Substance: CYTARABINE
     Indication: Lymphoma transformation
     Dosage: UNK
     Route: 065
  4. FLUDARABINE [Suspect]
     Active Substance: FLUDARABINE PHOSPHATE
     Indication: Prophylaxis against transplant rejection
     Dosage: UNK
     Route: 065
  5. RITUXIMAB [Suspect]
     Active Substance: RITUXIMAB
     Indication: Lymphoma transformation
     Dosage: UNK
     Route: 065
  6. METHYLPREDNISOLONE [Suspect]
     Active Substance: METHYLPREDNISOLONE
     Indication: Lymphoma transformation
     Dosage: UNK
     Route: 065
  7. VINCRISTINE [Suspect]
     Active Substance: VINCRISTINE
     Indication: Lymphoma transformation
     Dosage: UNK
     Route: 065
  8. ATEZOLIZUMAB [Suspect]
     Active Substance: ATEZOLIZUMAB
     Indication: Lymphoma transformation
     Dosage: 1200 MG AT DAY +1 (NO OF BSAB DOSES: 5)
     Route: 042
  9. MYCOPHENOLATE MOFETIL [Suspect]
     Active Substance: MYCOPHENOLATE MOFETIL
     Indication: Prophylaxis against transplant rejection
     Dosage: UNK
     Route: 065
  10. MYCOPHENOLATE MOFETIL [Suspect]
     Active Substance: MYCOPHENOLATE MOFETIL
     Indication: Prophylaxis against graft versus host disease
  11. CYCLOPHOSPHAMIDE [Suspect]
     Active Substance: CYCLOPHOSPHAMIDE
     Indication: Lymphoma transformation
     Dosage: UNK
     Route: 065
  12. CYCLOPHOSPHAMIDE [Suspect]
     Active Substance: CYCLOPHOSPHAMIDE
     Indication: Prophylaxis against transplant rejection
  13. CYCLOPHOSPHAMIDE [Suspect]
     Active Substance: CYCLOPHOSPHAMIDE
     Indication: Prophylaxis against graft versus host disease
  14. THIOTEPA [Suspect]
     Active Substance: THIOTEPA
     Indication: Prophylaxis against transplant rejection
     Dosage: UNK
     Route: 065
  15. PREDNISONE [Suspect]
     Active Substance: PREDNISONE
     Indication: Lymphoma transformation
     Dosage: UNK
     Route: 065
  16. GLOFITAMAB [Suspect]
     Active Substance: GLOFITAMAB
     Indication: Lymphoma transformation
     Dosage: 1800 MCG (NO. OF BSAB DOSES: 5)
     Route: 042
  17. BUSULFAN [Suspect]
     Active Substance: BUSULFAN
     Indication: Prophylaxis against transplant rejection
     Dosage: UNK
     Route: 065
  18. CISPLATIN [Suspect]
     Active Substance: CISPLATIN
     Indication: Lymphoma transformation
     Dosage: UNK
     Route: 065
  19. DOXORUBICIN [Suspect]
     Active Substance: DOXORUBICIN
     Indication: Lymphoma transformation
     Dosage: UNK
     Route: 065
  20. SULFAMETHOXAZOLE\TRIMETHOPRIM [Suspect]
     Active Substance: SULFAMETHOXAZOLE\TRIMETHOPRIM
     Indication: Infection prophylaxis
     Dosage: UNK
  21. ACYCLOVIR [Suspect]
     Active Substance: ACYCLOVIR
     Indication: Infection prophylaxis
     Dosage: UNK
  22. POSACONAZOLE [Suspect]
     Active Substance: POSACONAZOLE
     Indication: Infection prophylaxis
     Dosage: UNK
  23. PENTAMIDINE [Suspect]
     Active Substance: PENTAMIDINE
     Indication: Infection prophylaxis
     Dosage: UNK
  24. ETOPOSIDE [Suspect]
     Active Substance: ETOPOSIDE
     Indication: Lymphoma transformation
     Dosage: UNK

REACTIONS (4)
  - Chronic graft versus host disease [Fatal]
  - Graft versus host disease [Fatal]
  - Infection [Fatal]
  - Off label use [Unknown]
